FAERS Safety Report 5672892-X (Version None)
Quarter: 2008Q1

REPORT INFORMATION
  Report Type: 
  Country: None (occurrence: None)
  Receive Date: 20080319
  Receipt Date: 20071106
  Transmission Date: 20080703
  Serious: No
  Sender: FDA-Public Use
  Company Number: US-ASTRAZENECA-2007UW25783

PATIENT
  Age: 93 Year
  Sex: Female
  Weight: 52.6 kg

DRUGS (4)
  1. SYMBICORT [Suspect]
     Indication: DYSPNOEA
     Dosage: 400 UG BID
     Route: 055
     Dates: start: 20071101
  2. LOTENSIN [Concomitant]
  3. HYDROCHLOROTHIAZIDE [Concomitant]
  4. ATENOLOL [Concomitant]

REACTIONS (1)
  - JOINT SWELLING [None]
